FAERS Safety Report 24204583 (Version 1)
Quarter: 2024Q3

REPORT INFORMATION
  Report Type: Report from Study
  Country: US (occurrence: US)
  Receive Date: 20240813
  Receipt Date: 20240813
  Transmission Date: 20241017
  Serious: Yes (Hospitalization, Other)
  Sender: GILEAD
  Company Number: US-GILEAD-2024-0683326

PATIENT
  Sex: Female

DRUGS (1)
  1. AZTREONAM LYSINE [Suspect]
     Active Substance: AZTREONAM LYSINE
     Indication: Bronchiectasis
     Dosage: INHALE 1 VIAL VIA ALTERA NEBULIZER 3 TIMES DAILY FOR 28 DAYS. CONTINUE EVERY OTHER MONTH
     Route: 055
     Dates: start: 20240612

REACTIONS (4)
  - Pneumonia escherichia [Unknown]
  - Central venous catheterisation [Not Recovered/Not Resolved]
  - Off label use [Not Recovered/Not Resolved]
  - Product use issue [Unknown]
